FAERS Safety Report 5575992-8 (Version None)
Quarter: 2007Q4

REPORT INFORMATION
  Report Type: 
  Country: None (occurrence: None)
  Receive Date: 20071226
  Receipt Date: 20071210
  Transmission Date: 20080405
  Serious: Yes (Other)
  Sender: FDA-Public Use
  Company Number: GXKR2007GB10608

PATIENT
  Age: 38 Year
  Sex: Female

DRUGS (1)
  1. FLUOXETINE [Suspect]
     Indication: STRESS
     Dosage: 40 MG, QD, ORAL
     Route: 048

REACTIONS (3)
  - HYPERTENSION [None]
  - MACULAR OEDEMA [None]
  - RETINAL VEIN OCCLUSION [None]
